FAERS Safety Report 11216076 (Version 1)
Quarter: 2015Q2

REPORT INFORMATION
  Report Type: Spontaneous
  Country: CY (occurrence: CY)
  Receive Date: 20150624
  Receipt Date: 20150624
  Transmission Date: 20150821
  Serious: Yes (Other)
  Sender: FDA-Public Use
  Company Number: CY-GLAXOSMITHKLINE-CY2015GSK088914

PATIENT
  Age: 56 Year
  Sex: Male

DRUGS (1)
  1. AVAMYS [Suspect]
     Active Substance: FLUTICASONE FUROATE
     Indication: PRODUCT USED FOR UNKNOWN INDICATION
     Dosage: 2 PUFF(S), 1D

REACTIONS (1)
  - Staphylococcal infection [Unknown]
